FAERS Safety Report 13907048 (Version 3)
Quarter: 2019Q4

REPORT INFORMATION
  Report Type: Spontaneous
  Country: US (occurrence: US)
  Receive Date: 20170825
  Receipt Date: 20191112
  Transmission Date: 20200122
  Serious: Yes (Other)
  Sender: FDA-Public Use
  Company Number: US-ELI_LILLY_AND_COMPANY-US201708006506

PATIENT
  Age: 70 Year
  Sex: Male

DRUGS (13)
  1. METOPROLOL SUCCINATE. [Concomitant]
     Active Substance: METOPROLOL SUCCINATE
     Indication: BLOOD PRESSURE INCREASED
     Dosage: UNK UNK, UNKNOWN
     Route: 065
  2. CIALIS [Suspect]
     Active Substance: TADALAFIL
     Indication: ERECTILE DYSFUNCTION
     Dosage: UNK UNK, WEEKLY (1/W)
     Route: 065
     Dates: start: 20090827, end: 20090919
  3. LORAZEPAM. [Concomitant]
     Active Substance: LORAZEPAM
     Indication: SLEEP DISORDER
     Dosage: UNK UNK, UNKNOWN
     Route: 065
     Dates: start: 2013, end: 2018
  4. ALLOPURINOL. [Concomitant]
     Active Substance: ALLOPURINOL
     Indication: GOUT
     Dosage: UNK UNK, UNKNOWN
     Route: 065
     Dates: start: 2011, end: 2018
  5. GLIPIZIDE XL [Concomitant]
     Active Substance: GLIPIZIDE
     Indication: DIABETES MELLITUS
     Dosage: UNK UNK, UNKNOWN
     Route: 065
     Dates: start: 2007, end: 2018
  6. OMEPRAZOLE. [Concomitant]
     Active Substance: OMEPRAZOLE
     Indication: GASTROOESOPHAGEAL REFLUX DISEASE
     Dosage: UNK UNK, UNKNOWN
     Route: 065
     Dates: start: 2014, end: 2018
  7. VITAMIN B [Concomitant]
     Active Substance: VITAMIN B
     Indication: VITAMIN D DEFICIENCY
     Dosage: UNK UNK, UNKNOWN
     Route: 065
  8. CIALIS [Suspect]
     Active Substance: TADALAFIL
     Dosage: UNK UNK, WEEKLY (1/W)
     Route: 065
     Dates: start: 20090924, end: 20130813
  9. GEMFIBROZIL. [Concomitant]
     Active Substance: GEMFIBROZIL
     Indication: BLOOD CHOLESTEROL ABNORMAL
     Dosage: UNK UNK, UNKNOWN
     Route: 065
     Dates: start: 2009, end: 2018
  10. DIOVAN [Concomitant]
     Active Substance: VALSARTAN
     Indication: BLOOD PRESSURE INCREASED
     Dosage: UNK UNK, UNKNOWN
     Route: 065
     Dates: start: 2004, end: 2018
  11. VIAGRA [Suspect]
     Active Substance: SILDENAFIL CITRATE
     Indication: ERECTILE DYSFUNCTION
     Dosage: UNK, UNKNOWN
     Route: 065
  12. VITAMIN D VITAMIN D NOS [Concomitant]
     Indication: VITAMIN D DEFICIENCY
     Dosage: UNK UNK, UNKNOWN
     Route: 065
  13. HEMATINIC PLUS [CALCIUM PANTOTHENATE;COPPER S [Concomitant]
     Indication: HYPOVITAMINOSIS
     Dosage: UNK UNK, UNKNOWN
     Route: 065
     Dates: start: 2004, end: 2018

REACTIONS (2)
  - Lipoma [Recovered/Resolved]
  - Malignant melanoma stage II [Recovered/Resolved]

NARRATIVE: CASE EVENT DATE: 201210
